FAERS Safety Report 10676063 (Version 3)
Quarter: 2015Q1

REPORT INFORMATION
  Report Type: Spontaneous
  Country: JP (occurrence: JP)
  Receive Date: 20141225
  Receipt Date: 20150120
  Transmission Date: 20150720
  Serious: Yes (Life-Threatening, Hospitalization)
  Sender: FDA-Public Use
  Company Number: JP-ROCHE-1514237

PATIENT
  Age: 83 Year
  Sex: Male
  Weight: 54 kg

DRUGS (4)
  1. LUCENTIS [Suspect]
     Active Substance: RANIBIZUMAB
     Dosage: IN RIGHT EYE
     Route: 050
     Dates: start: 20140805
  2. LUCENTIS [Suspect]
     Active Substance: RANIBIZUMAB
     Dosage: IN RIGHT EYE
     Route: 050
     Dates: start: 20140904
  3. LUCENTIS [Suspect]
     Active Substance: RANIBIZUMAB
     Indication: RETINAL VEIN OCCLUSION
     Dosage: IN RIGHT EYE
     Route: 050
     Dates: start: 20131114
  4. LUCENTIS [Suspect]
     Active Substance: RANIBIZUMAB
     Dosage: IN RIGHT EYE
     Route: 050
     Dates: start: 20140415

REACTIONS (4)
  - Blood urea increased [Unknown]
  - Blood alkaline phosphatase abnormal [Unknown]
  - Cerebral infarction [Unknown]
  - Blood lactate dehydrogenase increased [Unknown]

NARRATIVE: CASE EVENT DATE: 20141106
